FAERS Safety Report 4893375-0 (Version None)
Quarter: 2006Q1

REPORT INFORMATION
  Report Type: 
  Country: None (occurrence: None)
  Receive Date: 20060124
  Receipt Date: 20060114
  Transmission Date: 20060701
  Serious: Yes (Other)
  Sender: FDA-Public Use
  Company Number: 2006008732

PATIENT
  Sex: Female

DRUGS (1)
  1. NEURONTIN [Suspect]
     Indication: PAIN
     Dosage: 600 MG

REACTIONS (2)
  - DIALYSIS [None]
  - RESTLESS LEGS SYNDROME [None]
